FAERS Safety Report 5889597-2 (Version None)
Quarter: 2008Q3

REPORT INFORMATION
  Report Type: 
  Country: None (occurrence: None)
  Receive Date: 20080919
  Receipt Date: 20080912
  Transmission Date: 20090109
  Serious: Yes (Hospitalization)
  Sender: FDA-Public Use
  Company Number: A0748272A

PATIENT
  Age: 43 Year
  Sex: Female
  Weight: 86.4 kg

DRUGS (6)
  1. AVANDIA [Suspect]
     Indication: DIABETES MELLITUS
     Dosage: 4MG PER DAY
     Route: 048
     Dates: start: 19990101, end: 20071217
  2. AMARYL [Concomitant]
  3. LANTUS [Concomitant]
  4. GLUCOTROL [Concomitant]
  5. PROZAC [Concomitant]
  6. CHOLESTYRAMINE [Concomitant]

REACTIONS (4)
  - FOOT FRACTURE [None]
  - FRACTURE [None]
  - MULTIPLE FRACTURES [None]
  - OSTEOGENESIS IMPERFECTA [None]
